FAERS Safety Report 4576744-8 (Version None)
Quarter: 2005Q1

REPORT INFORMATION
  Report Type: 
  Country: None (occurrence: None)
  Receive Date: 20050207
  Receipt Date: 20050128
  Transmission Date: 20050727
  Serious: Yes (Hospitalization)
  Sender: FDA-Public Use
  Company Number: 2004-BP-05236RO

PATIENT
  Age: 62 Year
  Sex: Male
  Weight: 83.5 kg

DRUGS (10)
  1. PREDNISONE TAB [Suspect]
     Indication: MANTLE CELL LYMPHOMA
     Dosage: 100 MG/DAY FOR 5 DAYS (R-CHOP 1 CYCLE EVERY 21 DAYS) PE
     Dates: start: 20030922
  2. GENASENSE [Suspect]
     Indication: MANTLE CELL LYMPHOMA
     Dosage: 3 MG/KG DAY (7 DAY CYCLE EVERY 21 DAYS) IV
     Route: 042
     Dates: start: 20030610
  3. RITUXIMAB (RITUXIMAB) [Suspect]
     Indication: MANTLE CELL LYMPHOMA
     Dosage: 375 MG/M2 (R-CHOP 1 CYCLE EVERY 21 DAYS), IV
     Route: 042
     Dates: start: 20030922
  4. CYCLOPHOSPHAMIDE [Suspect]
     Indication: MANTLE CELL LYMPHOMA
     Dosage: 750 MG/M2 (R-CHOP 1 CYCLE EVERY 21 DAYS), IV
     Route: 042
     Dates: start: 20030922
  5. DOXORUBICIN HCL [Suspect]
     Indication: MANTLE CELL LYMPHOMA
     Dosage: 50 MG/M2 (R-CHOP 1 CYCLE EVERY 21 DAYS), IV
     Route: 042
     Dates: start: 20030922
  6. VINCRISTINE [Suspect]
     Indication: MANTLE CELL LYMPHOMA
     Dosage: 1.4 MG/M2 (R-CHOP 1 CYCLE EVERY 21 DAYS), IV
     Route: 042
     Dates: start: 20030922
  7. ACETAMINOPHEN [Concomitant]
  8. ALLOPURINOL [Concomitant]
  9. ESCITALOPRAM (ESCITALOPRAM) [Concomitant]
  10. VERAPAMIL [Concomitant]

REACTIONS (8)
  - BACK PAIN [None]
  - CULTURE URINE POSITIVE [None]
  - ENTEROCOCCAL INFECTION [None]
  - FATIGUE [None]
  - FEBRILE NEUTROPENIA [None]
  - HAEMATOCRIT DECREASED [None]
  - HAEMOGLOBIN DECREASED [None]
  - PLATELET COUNT DECREASED [None]
